FAERS Safety Report 6568423-2 (Version None)
Quarter: 2010Q1

REPORT INFORMATION
  Report Type: 
  Country: None (occurrence: None)
  Receive Date: 20100128
  Receipt Date: 20100113
  Transmission Date: 20100710
  Serious: Yes (Hospitalization)
  Sender: FDA-Public Use
  Company Number: 2010AC000060

PATIENT
  Age: 65 Year
  Sex: Male

DRUGS (51)
  1. DIGOXIN [Suspect]
     Dosage: 0.25 MG;QD;PO
     Route: 048
  2. DIGOXIN [Suspect]
     Dosage: 0.125 MG;QD;PO
     Route: 048
  3. ASPIRIN [Concomitant]
  4. TERAZOSIN HCL [Concomitant]
  5. MECLIZINE [Concomitant]
  6. VALSARTAN [Concomitant]
  7. FUROSEMIDE [Concomitant]
  8. BUPROPION [Concomitant]
  9. OMEPRAZOLE [Concomitant]
  10. POTASSIUM CHLORIDE [Concomitant]
  11. ADVIL [Concomitant]
  12. LEVOTHYROXINE SODIUM [Concomitant]
  13. LIPITOR [Concomitant]
  14. VASOTEC [Concomitant]
  15. SYNTHROID [Concomitant]
  16. PRILOSEC [Concomitant]
  17. IMDUR [Concomitant]
  18. LISINOPRIL [Concomitant]
  19. ALDACTONE [Concomitant]
  20. COLACE [Concomitant]
  21. COREG [Concomitant]
  22. NITROGLYCERIN [Concomitant]
  23. COUMADIN [Concomitant]
  24. CENTRUM SILVER [Concomitant]
  25. PROTONIX [Concomitant]
  26. TOPROL-XL [Concomitant]
  27. SPIRONOLACTONE [Concomitant]
  28. ATACAND [Concomitant]
  29. WELLBUTRIN [Concomitant]
  30. AVELOX [Concomitant]
  31. *ATORVASTATIN [Concomitant]
  32. CARVEDILOL [Concomitant]
  33. CYANOCOBALAMIN [Concomitant]
  34. ENOXAPARIN SODIUM [Concomitant]
  35. FISH OIL [Concomitant]
  36. FOLIC ACID [Concomitant]
  37. PANTOPRAZOLE [Concomitant]
  38. POTASSIUM PHOSPHATES [Concomitant]
  39. ACETAMINOPHEN [Concomitant]
  40. GLUCAGON [Concomitant]
  41. LORAZEPAM [Concomitant]
  42. VANTIN [Concomitant]
  43. AZITHROMYCIN [Concomitant]
  44. MILK OF MAGNESIA TAB [Concomitant]
  45. LEVOTHROID [Concomitant]
  46. VITAMIN C [Concomitant]
  47. PREDNISONE [Concomitant]
  48. MULTI-VITAMIN [Concomitant]
  49. NITROGLYCERIN [Concomitant]
  50. ROBITUSSIN [Concomitant]
  51. OXYCODONE HCL [Concomitant]

REACTIONS (36)
  - ABNORMAL BEHAVIOUR [None]
  - ACUTE MYOCARDIAL INFARCTION [None]
  - ASTHENIA [None]
  - ATRIAL FIBRILLATION [None]
  - CARDIOACTIVE DRUG LEVEL INCREASED [None]
  - CARDIOMEGALY [None]
  - CHEST PAIN [None]
  - COGNITIVE DISORDER [None]
  - CONFUSIONAL STATE [None]
  - CONSTIPATION [None]
  - COUGH [None]
  - DIZZINESS [None]
  - DYSPNOEA [None]
  - FALL [None]
  - FOREIGN BODY [None]
  - HAEMODIALYSIS [None]
  - HYPERHIDROSIS [None]
  - HYPOAESTHESIA [None]
  - HYPOMAGNESAEMIA [None]
  - HYPOPHOSPHATAEMIA [None]
  - HYPOTENSION [None]
  - INJURY [None]
  - LABORATORY TEST ABNORMAL [None]
  - LEUKOCYTOSIS [None]
  - NAUSEA [None]
  - NORMOCHROMIC NORMOCYTIC ANAEMIA [None]
  - PALPITATIONS [None]
  - PNEUMONIA [None]
  - PUPILS UNEQUAL [None]
  - RENAL FAILURE ACUTE [None]
  - SEPSIS [None]
  - SPINAL COMPRESSION FRACTURE [None]
  - THERAPEUTIC AGENT TOXICITY [None]
  - URINARY INCONTINENCE [None]
  - WEIGHT DECREASED [None]
  - WEIGHT INCREASED [None]
